FAERS Safety Report 15391282 (Version 1)
Quarter: 2018Q3

REPORT INFORMATION
  Report Type: Spontaneous
  Country: US (occurrence: US)
  Receive Date: 20180917
  Receipt Date: 20180917
  Transmission Date: 20181010
  Serious: No
  Sender: FDA-Public Use
  Company Number: US-GLAXOSMITHKLINE-US2018167315

PATIENT
  Sex: Female

DRUGS (2)
  1. FOLIC ACID. [Concomitant]
     Active Substance: FOLIC ACID
  2. LAMICTAL XR [Suspect]
     Active Substance: LAMOTRIGINE
     Indication: GENERALISED TONIC-CLONIC SEIZURE
     Dosage: 300 MG, BID
     Route: 048
     Dates: start: 2009

REACTIONS (6)
  - Cough [Recovering/Resolving]
  - Chest pain [Recovered/Resolved]
  - Exposure during pregnancy [Unknown]
  - Nasopharyngitis [Recovering/Resolving]
  - Bronchitis [Recovering/Resolving]
  - Drug dose omission [Unknown]
